FAERS Safety Report 5415045-2 (Version None)
Quarter: 2007Q3

REPORT INFORMATION
  Report Type: 
  Country: None (occurrence: None)
  Receive Date: 20070815
  Receipt Date: 20070427
  Transmission Date: 20080115
  Serious: No
  Sender: FDA-Public Use
  Company Number: A0649077A

PATIENT
  Age: 77 Year
  Sex: Female

DRUGS (6)
  1. COREG CR [Suspect]
     Dosage: 10MG PER DAY
     Route: 048
     Dates: start: 20070328
  2. LISINOPRIL [Concomitant]
  3. LIPITOR [Concomitant]
  4. PLAVIX [Concomitant]
  5. CORGARD [Concomitant]
  6. LEVAQUIN [Concomitant]

REACTIONS (2)
  - NAUSEA [None]
  - WEIGHT DECREASED [None]
